FAERS Safety Report 17930426 (Version 3)
Quarter: 2020Q3

REPORT INFORMATION
  Report Type: Report from Study
  Country: GB (occurrence: GB)
  Receive Date: 20200623
  Receipt Date: 20200727
  Transmission Date: 20201103
  Serious: Yes (Hospitalization)
  Sender: FDA-Public Use
  Company Number: GB-JNJFOC-20200521411

PATIENT
  Sex: Male

DRUGS (15)
  1. PARACETAMOL [Concomitant]
     Active Substance: ACETAMINOPHEN
     Indication: PAIN
     Dosage: 500 MG TO 1 GRAM, AS PER NEEDED (PRN) UP TO 4 TIMES A DAY (QDS)
     Route: 048
  2. PREDNISOLONE. [Suspect]
     Active Substance: PREDNISOLONE
     Indication: HORMONE-REFRACTORY PROSTATE CANCER
     Route: 048
     Dates: start: 20191114
  3. AMITRIPTYLINE HYDROCHLORIDE. [Concomitant]
     Active Substance: AMITRIPTYLINE HYDROCHLORIDE
     Indication: PAIN
     Route: 048
     Dates: start: 20181228
  4. DIHYDROCODEINE [Concomitant]
     Active Substance: DIHYDROCODEINE
     Indication: PAIN
     Route: 048
  5. OMEPRAZOLE. [Concomitant]
     Active Substance: OMEPRAZOLE
     Indication: PROPHYLAXIS
     Route: 048
  6. LOPERAMIDE [Concomitant]
     Active Substance: LOPERAMIDE
     Indication: DIARRHOEA
     Dosage: PRN (AS PER NEEDED)
     Route: 048
  7. ASPRIN [Concomitant]
     Active Substance: ASPIRIN
     Indication: PRODUCT USED FOR UNKNOWN INDICATION
     Route: 048
  8. CALCIUM CARBONATE W/COLECALCIFEROL [Concomitant]
     Active Substance: CALCIUM CARBONATE\CHOLECALCIFEROL
     Indication: PROPHYLAXIS
     Dosage: EVERY MORNING
     Route: 048
     Dates: start: 201908
  9. GOSERELIN [Concomitant]
     Active Substance: GOSERELIN
     Indication: ANDROGEN THERAPY
     Route: 058
  10. ABIRATERONE ACETATE. [Suspect]
     Active Substance: ABIRATERONE ACETATE
     Indication: HORMONE-REFRACTORY PROSTATE CANCER
     Route: 048
     Dates: start: 20191114
  11. BISOPROLOL [Concomitant]
     Active Substance: BISOPROLOL
     Indication: PRODUCT USED FOR UNKNOWN INDICATION
     Dosage: PRE EXISTING CONDITION
     Route: 048
     Dates: start: 20181228
  12. CYPROTERONE ACETATE [Concomitant]
     Active Substance: CYPROTERONE ACETATE
     Indication: ANTIANDROGEN THERAPY
     Route: 048
  13. RAMIPRIL. [Concomitant]
     Active Substance: RAMIPRIL
     Indication: HYPERTENSION
     Route: 048
     Dates: start: 20110114
  14. PREGABALIN. [Concomitant]
     Active Substance: PREGABALIN
     Indication: SEIZURE
     Route: 048
  15. PREDNISOLONE. [Suspect]
     Active Substance: PREDNISOLONE
     Route: 048
     Dates: start: 20200512

REACTIONS (3)
  - Pancreatitis acute [Recovered/Resolved]
  - Abdominal sepsis [Recovered/Resolved]
  - Hyperglycaemia [Recovered/Resolved]

NARRATIVE: CASE EVENT DATE: 20200506
